FAERS Safety Report 7640250-4 (Version None)
Quarter: 2011Q3

REPORT INFORMATION
  Report Type: 
  Country: None (occurrence: None)
  Receive Date: 20110728
  Receipt Date: 20110720
  Transmission Date: 20111222
  Serious: Yes (Death, Hospitalization)
  Sender: FDA-Public Use
  Company Number: JP-BAYER-2011-063134

PATIENT
  Age: 77 Year
  Sex: Male
  Weight: 52 kg

DRUGS (3)
  1. NEXAVAR [Suspect]
     Indication: HEPATIC NEOPLASM MALIGNANT
     Dosage: DAILY DOSE 800 MG
     Route: 048
     Dates: start: 20100510, end: 20100517
  2. NEXAVAR [Suspect]
  3. NEXAVAR [Suspect]
     Dosage: DAILY DOSE 400 MG
     Dates: start: 20100521, end: 20100601

REACTIONS (4)
  - HEPATIC FUNCTION ABNORMAL [None]
  - BLOOD AMYLASE INCREASED [None]
  - ASCITES [None]
  - HEPATIC NEOPLASM MALIGNANT [None]
